FAERS Safety Report 9393394 (Version 1)
Quarter: 2013Q3

REPORT INFORMATION
  Report Type: Report from Study
  Country: DE (occurrence: DE)
  Receive Date: 20130710
  Receipt Date: 20130710
  Transmission Date: 20140515
  Serious: Yes (Other)
  Sender: FDA-Public Use
  Company Number: PHHY2013DE071932

PATIENT
  Sex: Male

DRUGS (3)
  1. FTY 720 [Suspect]
     Indication: MULTIPLE SCLEROSIS
     Dosage: 0.5 MG, QD
     Route: 048
     Dates: start: 20130301
  2. BACLOFEN [Concomitant]
     Dosage: 15 MG, QD
     Dates: start: 20120116, end: 20120320
  3. BACLOFEN [Concomitant]
     Dosage: 50 MG, QD
     Dates: start: 20130427

REACTIONS (2)
  - Angina pectoris [Recovered/Resolved]
  - Chest discomfort [Recovered/Resolved]
